FAERS Safety Report 7168627 (Version 4)
Quarter: 2020Q3

REPORT INFORMATION
  Report Type: Report from Study
  Country: US (occurrence: US)
  Receive Date: 20091106
  Receipt Date: 20110215
  Transmission Date: 20201104
  Serious: Yes (Hospitalization)
  Sender: FDA-Public Use
  Company Number: US-JNJFOC-20091009099

PATIENT
  Age: 28 Year
  Sex: Female
  Weight: 85 kg

DRUGS (12)
  1. PAIN MEDICATION [Concomitant]
     Route: 030
  2. HYDROCODONE BITARTRATE AND ACETAMINOPHEN [Concomitant]
     Active Substance: ACETAMINOPHEN\HYDROCODONE BITARTRATE
     Indication: CROHN^S DISEASE
     Route: 048
  3. HYDROCODONE BITARTRATE AND ACETAMINOPHEN [Concomitant]
     Active Substance: ACETAMINOPHEN\HYDROCODONE BITARTRATE
     Route: 048
  4. METHOTREXATE. [Concomitant]
     Active Substance: METHOTREXATE
     Indication: CROHN^S DISEASE
     Route: 058
  5. FLOXIN [Concomitant]
     Active Substance: OFLOXACIN
     Route: 061
  6. FOLIC ACID. [Concomitant]
     Active Substance: FOLIC ACID
     Route: 048
  7. USTEKINUMAB [Suspect]
     Active Substance: USTEKINUMAB
     Indication: CROHN^S DISEASE
     Route: 042
     Dates: start: 20090928, end: 20090928
  8. FLOXIN [Concomitant]
     Active Substance: OFLOXACIN
     Route: 061
  9. AMOXICILLIN. [Concomitant]
     Active Substance: AMOXICILLIN
     Route: 048
  10. USTEKINUMAB [Suspect]
     Active Substance: USTEKINUMAB
     Route: 042
     Dates: start: 20090928, end: 20090928
  11. FLU VACCINE [Concomitant]
     Route: 030
  12. ANTIBIOTIC [Concomitant]
     Active Substance: UNSPECIFIED INGREDIENT
     Route: 030

REACTIONS (2)
  - Vaginal abscess [Recovered/Resolved]
  - Enterocutaneous fistula [None]

NARRATIVE: CASE EVENT DATE: 20091027
